FAERS Safety Report 4395934-0 (Version None)
Quarter: 2004Q3

REPORT INFORMATION
  Report Type: 
  Country: None (occurrence: None)
  Receive Date: 20040709
  Receipt Date: 20040626
  Transmission Date: 20050211
  Serious: Yes (Hospitalization)
  Sender: FDA-Public Use
  Company Number: DSA_80690_2004

PATIENT
  Age: 26 Year
  Sex: Male

DRUGS (6)
  1. XYREM [Suspect]
     Indication: NARCOLEPSY
     Dosage: 5 ML TWICE NIGHTLY PO
     Route: 048
  2. DEPAKOTE [Concomitant]
  3. METOPROLOL [Concomitant]
  4. PAROXETINE HCL [Concomitant]
  5. RISPERDAL [Concomitant]
  6. AMBIEN [Concomitant]

REACTIONS (11)
  - BRAIN CONTUSION [None]
  - CEREBRAL HAEMORRHAGE [None]
  - EPISTAXIS [None]
  - EXTRADURAL HAEMATOMA [None]
  - FALL [None]
  - HEAD INJURY [None]
  - HEADACHE [None]
  - HICCUPS [None]
  - HYPERVENTILATION [None]
  - SINUSITIS [None]
  - SYNCOPE [None]
